FAERS Safety Report 5298888-8 (Version None)
Quarter: 2007Q2

REPORT INFORMATION
  Report Type: 
  Country: None (occurrence: None)
  Receive Date: 20070417
  Receipt Date: 20070405
  Transmission Date: 20071010
  Serious: Yes (Hospitalization)
  Sender: FDA-Public Use
  Company Number: US-AMGEN-US203306

PATIENT
  Sex: Female

DRUGS (9)
  1. AMG 706 [Suspect]
     Indication: METASTATIC NEOPLASM
     Route: 048
     Dates: start: 20060927
  2. PANITUMUMAB [Suspect]
     Indication: METASTATIC NEOPLASM
     Route: 042
     Dates: start: 20060927
  3. RADIATION THERAPY [Concomitant]
     Route: 050
     Dates: start: 20060814, end: 20060915
  4. DECADRON [Concomitant]
     Route: 065
     Dates: start: 20060809, end: 20060915
  5. CISPLATIN [Concomitant]
     Route: 042
  6. GEMZAR [Concomitant]
     Route: 042
  7. LORTAB [Concomitant]
     Route: 065
  8. LEXAPRO [Concomitant]
     Route: 065
  9. TUSSIONEX [Concomitant]
     Route: 065

REACTIONS (1)
  - HYPOTHYROIDISM [None]
